FAERS Safety Report 9329025 (Version 1)
Quarter: 2013Q2

REPORT INFORMATION
  Report Type: Spontaneous
  Country: US (occurrence: US)
  Receive Date: 20130604
  Receipt Date: 20130604
  Transmission Date: 20140414
  Serious: No
  Sender: FDA-Public Use
  Company Number: US-SANOFI-AVENTIS-2013SA041218

PATIENT
  Age: 74 Year
  Sex: Male
  Weight: 69 kg

DRUGS (7)
  1. LANTUS SOLOSTAR [Suspect]
     Indication: DIABETES MELLITUS
     Dosage: PRODUCT START DATE : 3 YEARS AGO?DOSE : 4-7 UNITS
  2. SOLOSTAR [Suspect]
  3. ORAL ANTIDIABETICS [Suspect]
  4. LOSARTAN POTASSIUM [Concomitant]
  5. FUROSEMIDE [Concomitant]
  6. CARVEDILOL [Concomitant]
  7. GLIPIZIDE [Concomitant]

REACTIONS (2)
  - Hypoacusis [Unknown]
  - Blood glucose increased [Unknown]
